FAERS Safety Report 25979088 (Version 1)
Quarter: 2025Q4

REPORT INFORMATION
  Report Type: Spontaneous
  Country: US (occurrence: None)
  Receive Date: 20251029
  Receipt Date: 20251029
  Transmission Date: 20260118
  Serious: Yes (Hospitalization)
  Sender: FDA-CTU
  Company Number: None

PATIENT
  Age: 85 Year
  Sex: Female

DRUGS (11)
  1. TAGRISSO [Suspect]
     Active Substance: OSIMERTINIB
     Indication: Lung neoplasm malignant
     Dosage: 1 TAB DAILY ORAL ?
     Route: 048
     Dates: start: 20240708
  2. VITAMIN B COMPLEX [Concomitant]
     Active Substance: CYANOCOBALAMIN\DEXPANTHENOL\NIACINAMIDE\PYRIDOXINE HYDROCHLORIDE\RIBOFLAVIN 5^-PHOSPHATE SODIUM\THIA
  3. ACETAMINOPHEN [Concomitant]
     Active Substance: ACETAMINOPHEN
  4. SENTRY [Concomitant]
  5. LOSARTAN [Concomitant]
     Active Substance: LOSARTAN
  6. AMLODIPINE BESYLATE [Concomitant]
     Active Substance: AMLODIPINE BESYLATE
  7. ATORVASTATIN [Concomitant]
     Active Substance: ATORVASTATIN
  8. BENZONATATE [Concomitant]
     Active Substance: BENZONATATE
  9. ASPIRIN [Concomitant]
     Active Substance: ASPIRIN
  10. METOPROLOL TARTRATE [Concomitant]
     Active Substance: METOPROLOL TARTRATE
  11. ELIQUIS [Concomitant]
     Active Substance: APIXABAN

REACTIONS (2)
  - Hospitalisation [None]
  - Therapy interrupted [None]

NARRATIVE: CASE EVENT DATE: 20250815
